FAERS Safety Report 8101755-5 (Version None)
Quarter: 2012Q1

REPORT INFORMATION
  Report Type: 
  Country: None (occurrence: None)
  Receive Date: 20120131
  Receipt Date: 20120124
  Transmission Date: 20120608
  Serious: Yes (Other)
  Sender: FDA-Public Use
  Company Number: PHEH2011US05264

PATIENT
  Sex: Female
  Weight: 63.039 kg

DRUGS (13)
  1. GILENYA [Suspect]
     Dosage: 0.5 MG, ONE CAP EVERY DAY
  2. TRAZODONE HCL [Concomitant]
     Dosage: 100 MG, UNK
     Dates: start: 20100101
  3. ASPIRIN [Concomitant]
     Dosage: 81 MG, UNK
  4. RANEXA [Concomitant]
     Dosage: 1000 MG, UNK
  5. LISINOPRIL [Concomitant]
     Dosage: 2.5 MG, UNK
  6. NAPROXEN (ALEVE) [Concomitant]
     Dosage: 220 MG, UNK
  7. ISOSORBIDE MONONITRATE [Concomitant]
     Dosage: 60 MG, UNK
  8. TOPAMAX [Concomitant]
     Dosage: 200 MG, UNK
  9. TOPROL-XL [Concomitant]
     Dosage: 25 MG, UNK
  10. KEPPRA [Concomitant]
     Indication: MIGRAINE
     Dosage: 1000 MG, UNK
  11. XANAX [Concomitant]
     Dosage: 0.5 MG, UNK
  12. CRESTOR [Concomitant]
     Dosage: 20 MG, UNK
  13. EFFIENT [Concomitant]
     Dosage: 10 MG, UNK

REACTIONS (2)
  - MYOCARDIAL INFARCTION [None]
  - MIGRAINE [None]
